FAERS Safety Report 8499091 (Version 2)
Quarter: 2014Q1

REPORT INFORMATION
  Report Type: Spontaneous
  Country: ES (occurrence: ES)
  Receive Date: 20120409
  Receipt Date: 20140307
  Transmission Date: 20141002
  Serious: Yes (Death)
  Sender: FDA-Public Use
  Company Number: ES-JNJFOC-20120402890

PATIENT
  Sex: 0

DRUGS (5)
  1. DOXORUBICIN [Suspect]
     Indication: LYMPHOMA
     Route: 042
  2. DOXORUBICIN [Suspect]
     Indication: LYMPHOMA
     Route: 065
  3. CYCLOPHOSPHAMIDE [Suspect]
     Indication: LYMPHOMA
     Route: 065
  4. VINCRISTINE [Suspect]
     Indication: LYMPHOMA
     Route: 065
  5. PREDNISONE [Suspect]
     Indication: LYMPHOMA
     Route: 065

REACTIONS (1)
  - Febrile neutropenia [Fatal]
